FAERS Safety Report 7843008-6 (Version None)
Quarter: 2011Q4

REPORT INFORMATION
  Report Type: 
  Country: None (occurrence: None)
  Receive Date: 20111025
  Receipt Date: 20111014
  Transmission Date: 20120403
  Serious: Yes (Death)
  Sender: FDA-Public Use
  Company Number: SE-NOVOPROD-334180

PATIENT

DRUGS (10)
  1. COZAAR [Concomitant]
     Indication: CARDIAC DISORDER
     Dosage: 1X1
     Dates: start: 20080521
  2. SELOKEN ZOC/ASA [Concomitant]
     Indication: HYPERLIPIDAEMIA
     Dosage: 1X1
  3. ASPIRIN [Concomitant]
     Indication: CARDIAC DISORDER
     Dosage: 1X1
     Dates: start: 20060101
  4. COZAAR [Concomitant]
     Indication: RENAL DISORDER
  5. METFORMIN HCL [Concomitant]
     Indication: DIABETES MELLITUS
     Dosage: 2X2X2
     Dates: start: 20060501
  6. ACETYLCYSTEINE [Concomitant]
     Indication: UPPER RESPIRATORY TRACT INFECTION
     Dosage: 200 MG, UNK
     Dates: start: 20101126
  7. FUROSEMIDE [Concomitant]
     Indication: CARDIAC FAILURE
     Dosage: 1X1
     Dates: start: 20060101
  8. VICTOZA [Suspect]
     Dosage: 1.2 MG, UNK
     Route: 065
  9. BUVENTOL [Concomitant]
     Dosage: 200 MCG 1-2 X 1-4 TIMES DAILY
     Route: 055
     Dates: start: 20110414
  10. VICTOZA [Suspect]
     Indication: TYPE 2 DIABETES MELLITUS
     Dosage: 0.6 MG, QD
     Route: 065
     Dates: start: 20110506

REACTIONS (1)
  - DEATH [None]
